FAERS Safety Report 5675757-2 (Version None)
Quarter: 2008Q1

REPORT INFORMATION
  Report Type: 
  Country: None (occurrence: None)
  Receive Date: 20080318
  Receipt Date: 20080307
  Transmission Date: 20080703
  Serious: Yes (Other)
  Sender: FDA-Public Use
  Company Number: CHPA2008US04312

PATIENT
  Age: 29 Year
  Sex: Male

DRUGS (1)
  1. THERAFLU SEVERE COLD (NCH) (PHENIRAMINE MALEATE, PHENYLEPHRINE HYDROCH [Suspect]
     Indication: NASOPHARYNGITIS
     Dosage: 1 DF, ONCE/SINGLE, ORAL
     Route: 048
     Dates: start: 20080206, end: 20080206

REACTIONS (2)
  - FEELING COLD [None]
  - HALLUCINATION [None]
